FAERS Safety Report 6576245-1 (Version None)
Quarter: 2010Q1

REPORT INFORMATION
  Report Type: 
  Country: None (occurrence: None)
  Receive Date: 20100210
  Receipt Date: 20100205
  Transmission Date: 20100710
  Serious: Yes (Other)
  Sender: FDA-Public Use
  Company Number: US-ASTRAZENECA-2009UW04116

PATIENT
  Age: 36 Year
  Sex: Female
  Weight: 146.5 kg

DRUGS (19)
  1. SEROQUEL [Suspect]
     Indication: DEPRESSION
     Dosage: 25 MG TO 100 MG
     Route: 048
     Dates: start: 20020626, end: 20030201
  2. SEROQUEL [Suspect]
     Indication: DYSTHYMIC DISORDER
     Dosage: 25 MG TO 100 MG
     Route: 048
     Dates: start: 20020626, end: 20030201
  3. SEROQUEL [Suspect]
     Indication: POST-TRAUMATIC STRESS DISORDER
     Dosage: 25 MG TO 100 MG
     Route: 048
     Dates: start: 20020626, end: 20030201
  4. SEROQUEL [Suspect]
     Indication: PANIC DISORDER
     Dosage: 25 MG TO 100 MG
     Route: 048
     Dates: start: 20020626, end: 20030201
  5. SEROQUEL [Suspect]
     Indication: AGORAPHOBIA
     Dosage: 25 MG TO 100 MG
     Route: 048
     Dates: start: 20020626, end: 20030201
  6. SEROQUEL [Suspect]
     Indication: PANIC DISORDER WITH AGORAPHOBIA
     Dosage: 25 MG TO 100 MG
     Route: 048
     Dates: start: 20020626, end: 20030201
  7. XENICAL [Concomitant]
  8. RISPERDAL [Concomitant]
     Dosage: 3 MG TO 6 MG
     Dates: start: 20030401, end: 20060101
  9. ZYPREXA [Concomitant]
     Dosage: 2.5 MG TO 20 MG
     Dates: start: 20020101
  10. XANAX [Concomitant]
     Dosage: 0.5 MG TO 1 MG
     Dates: start: 20060101
  11. LEXAPRO [Concomitant]
     Dates: start: 20060101, end: 20070101
  12. ZOLOFT [Concomitant]
     Dosage: 100 MG TO 200 MG
     Dates: start: 20030101
  13. DEPAKOTE [Concomitant]
     Dosage: 250 MG TO 500 MG
     Dates: start: 19920101, end: 20020201
  14. TRAZODONE [Concomitant]
     Dates: start: 20000101, end: 20020201
  15. PAXIL [Concomitant]
     Dates: start: 20020113
  16. PROZAC [Concomitant]
     Dates: start: 20020113
  17. PREVACID [Concomitant]
  18. ACIPHEX [Concomitant]
     Dates: start: 20020208
  19. FIBERCON [Concomitant]
     Dates: start: 20020208

REACTIONS (6)
  - BREAST MASS [None]
  - OBESITY [None]
  - PERIRECTAL ABSCESS [None]
  - THROMBOSIS [None]
  - TYPE 2 DIABETES MELLITUS [None]
  - WEIGHT INCREASED [None]
